FAERS Safety Report 7817353-4 (Version None)
Quarter: 2011Q4

REPORT INFORMATION
  Report Type: 
  Country: None (occurrence: None)
  Receive Date: 20111012
  Receipt Date: 20110927
  Transmission Date: 20120403
  Serious: Yes (Other)
  Sender: FDA-Public Use
  Company Number: FK201102087

PATIENT
  Age: 68 Year
  Sex: Male

DRUGS (4)
  1. FLUOROURACIL [Concomitant]
  2. LEUCOVORIN (CALCIUM FOLINATE) (CALCIUM FOLINATE) [Concomitant]
  3. OXALIPLATIN [Suspect]
     Indication: COLORECTAL CANCER
     Dates: start: 20090201
  4. BEVACIZUMAB (BEVACIZUMAB) (BEVACIZUMAB) [Concomitant]

REACTIONS (2)
  - PERFORMANCE STATUS DECREASED [None]
  - SPLENOMEGALY [None]
